FAERS Safety Report 20796191 (Version 1)
Quarter: 2022Q2

REPORT INFORMATION
  Report Type: Spontaneous
  Country: US (occurrence: US)
  Receive Date: 20220506
  Receipt Date: 20220506
  Transmission Date: 20220720
  Serious: Yes (Hospitalization, Other)
  Sender: FDA-Public Use
  Company Number: US-INTRA-CELLULAR THERAPIES, INC.-2022ICT00410

PATIENT
  Age: 45 Year
  Sex: Female

DRUGS (5)
  1. CAPLYTA [Suspect]
     Active Substance: LUMATEPERONE
     Dosage: 42 MG, 1X/DAY
     Route: 048
     Dates: start: 2021
  2. BENZTROPINE [Suspect]
     Active Substance: BENZTROPINE
  3. HYDROXYZINE [Suspect]
     Active Substance: HYDROXYZINE HYDROCHLORIDE
  4. TRAZODONE [Concomitant]
     Active Substance: TRAZODONE HYDROCHLORIDE
     Dosage: UNK
  5. TRINTELLIX [Concomitant]
     Active Substance: VORTIOXETINE HYDROBROMIDE
     Dosage: UNK

REACTIONS (8)
  - Surgery [Unknown]
  - Umbilical hernia [Not Recovered/Not Resolved]
  - Abdominal hernia infection [Not Recovered/Not Resolved]
  - Excessive eye blinking [Not Recovered/Not Resolved]
  - Tic [Not Recovered/Not Resolved]
  - Tooth disorder [Not Recovered/Not Resolved]
  - Gingival disorder [Not Recovered/Not Resolved]
  - Dysphagia [Not Recovered/Not Resolved]
